FAERS Safety Report 5386095-X (Version None)
Quarter: 2007Q3

REPORT INFORMATION
  Report Type: 
  Country: None (occurrence: None)
  Receive Date: 20070710
  Receipt Date: 20070626
  Transmission Date: 20080115
  Serious: Yes (Other)
  Sender: FDA-Public Use
  Company Number: 8025180

PATIENT
  Age: 7 Year
  Sex: Female

DRUGS (3)
  1. KEPPRA [Suspect]
     Dosage: 250 MG 1/D
     Dates: start: 20070620, end: 20070621
  2. KEPPRA [Suspect]
     Dosage: 250 MG 2/D
     Dates: start: 20070622, end: 20070623
  3. KEPPRA [Suspect]
     Dosage: 250 MG 3/D
     Dates: start: 20070624

REACTIONS (2)
  - LEUKOPENIA [None]
  - THROMBOCYTOPENIA [None]
